FAERS Safety Report 4446865-9 (Version None)
Quarter: 2004Q3

REPORT INFORMATION
  Report Type: 
  Country: None (occurrence: None)
  Receive Date: 20040908
  Receipt Date: 20040826
  Transmission Date: 20050211
  Serious: Yes (Hospitalization)
  Sender: FDA-Public Use
  Company Number: 2004230945CA

PATIENT
  Age: 40 Year
  Sex: Female
  Weight: 94 kg

DRUGS (4)
  1. TRIPTORELIN PAMOATE (TRIPTORELIN PAMOATE) POWDER, STERILE [Suspect]
     Indication: BREAST CANCER
     Dosage: 3.75 MG
     Dates: end: 20040629
  2. CYCLOPHOSPHAMIDE [Suspect]
     Dates: start: 20040629
  3. FLUOROURACIL [Suspect]
     Dates: start: 20040629
  4. PHARMORUBICIN (EPIRUBICIN HYDROCHLORIDE) POWDER, STERILE [Suspect]
     Dates: start: 20040629

REACTIONS (4)
  - CATHETER SITE INFLAMMATION [None]
  - CATHETER SITE PAIN [None]
  - FEBRILE NEUTROPENIA [None]
  - JUGULAR VEIN THROMBOSIS [None]
